FAERS Safety Report 11260130 (Version 3)
Quarter: 2015Q4

REPORT INFORMATION
  Report Type: Spontaneous
  Country: US (occurrence: US)
  Receive Date: 20150710
  Receipt Date: 20151020
  Transmission Date: 20160304
  Serious: Yes (Hospitalization)
  Sender: FDA-Public Use
  Company Number: US-HTU-2015US011365

PATIENT
  Age: 89 Year
  Sex: Male
  Weight: 69.2 kg

DRUGS (8)
  1. COMPAZINE [Suspect]
     Active Substance: PROCHLORPERAZINE MALEATE
     Indication: NAUSEA
     Dosage: 10 MG, QID
     Route: 048
     Dates: start: 20150527
  2. TRAMADOL. [Concomitant]
     Active Substance: TRAMADOL
     Indication: ARTHRALGIA
     Dosage: UNK
     Dates: start: 20150528
  3. PF-04449913 [Suspect]
     Active Substance: GLASDEGIB
     Indication: MYELODYSPLASTIC SYNDROME
     Dosage: 100 MG QD X 28 DAYS
     Route: 048
     Dates: start: 20150528
  4. DEXAMETHASONE. [Concomitant]
     Active Substance: DEXAMETHASONE
     Indication: PREMEDICATION
     Dosage: UNK
     Dates: start: 20150527, end: 20150602
  5. AMBIEN [Concomitant]
     Active Substance: ZOLPIDEM TARTRATE
     Indication: SLEEP DISORDER
     Dosage: UNK
     Dates: start: 20131206
  6. AZACITIDINE. [Suspect]
     Active Substance: AZACITIDINE
     Indication: MYELODYSPLASTIC SYNDROME
     Dosage: 125 MG QD X 7 DAYS
     Route: 058
     Dates: start: 20150527
  7. ALOXI [Suspect]
     Active Substance: PALONOSETRON HYDROCHLORIDE
     Indication: PROPHYLAXIS OF NAUSEA AND VOMITING
     Dosage: 0.25 MG, CYCLIC, EVERY 3 DAYS
     Route: 042
     Dates: start: 20150527
  8. TERAZOSIN [Concomitant]
     Active Substance: TERAZOSIN\TERAZOSIN HYDROCHLORIDE
     Indication: BENIGN PROSTATIC HYPERPLASIA
     Dosage: UNK
     Dates: start: 20131206

REACTIONS (5)
  - Fatigue [None]
  - Mobility decreased [None]
  - Constipation [Recovered/Resolved]
  - Diarrhoea [None]
  - Asthenia [None]

NARRATIVE: CASE EVENT DATE: 20150604
